FAERS Safety Report 15758797 (Version 1)
Quarter: 2018Q4

REPORT INFORMATION
  Report Type: Spontaneous
  Country: FR (occurrence: FR)
  Receive Date: 20181225
  Receipt Date: 20181225
  Transmission Date: 20190205
  Serious: Yes (Hospitalization)
  Sender: FDA-Public Use
  Company Number: PHHY2018FR193063

PATIENT
  Age: 15 Year
  Sex: Male

DRUGS (2)
  1. DESLORATADINE. [Suspect]
     Active Substance: DESLORATADINE
     Indication: SUICIDE ATTEMPT
     Dosage: 3 ?G/L, QD
     Route: 048
     Dates: start: 20170327, end: 20170327
  2. XANAX [Suspect]
     Active Substance: ALPRAZOLAM
     Indication: SUICIDE ATTEMPT
     Dosage: 16 ?G/L, QD
     Route: 048
     Dates: start: 20170327, end: 20170327

REACTIONS (2)
  - Toxicity to various agents [Recovered/Resolved]
  - Somnolence [Recovered/Resolved]

NARRATIVE: CASE EVENT DATE: 20170327
